FAERS Safety Report 23054680 (Version 4)
Quarter: 2023Q4

REPORT INFORMATION
  Report Type: Spontaneous
  Country: FR (occurrence: FR)
  Receive Date: 20231011
  Receipt Date: 20231211
  Transmission Date: 20240110
  Serious: Yes (Hospitalization, Other)
  Sender: FDA-Public Use
  Company Number: FR-VERTEX PHARMACEUTICALS-2023-014942

PATIENT
  Age: 8 Year
  Sex: Male

DRUGS (2)
  1. ELEXACAFTOR\IVACAFTOR\TEZACAFTOR [Suspect]
     Active Substance: ELEXACAFTOR\IVACAFTOR\TEZACAFTOR
     Indication: Cystic fibrosis
     Dosage: 2 TABLETS
     Route: 048
     Dates: start: 202302
  2. KALYDECO [Suspect]
     Active Substance: IVACAFTOR
     Indication: Cystic fibrosis
     Dosage: 1 TAB
     Route: 048
     Dates: start: 202302

REACTIONS (2)
  - Generalised tonic-clonic seizure [Recovered/Resolved]
  - Influenza A virus test positive [Recovered/Resolved]

NARRATIVE: CASE EVENT DATE: 20230917
